FAERS Safety Report 5013723-0 (Version None)
Quarter: 2006Q2

REPORT INFORMATION
  Report Type: 
  Country: None (occurrence: None)
  Receive Date: 20060525
  Receipt Date: 20060505
  Transmission Date: 20061013
  Serious: Yes (Hospitalization)
  Sender: FDA-Public Use
  Company Number: US200605001333

PATIENT
  Age: 42 Year
  Sex: Male

DRUGS (1)
  1. STRATTERA [Suspect]
     Indication: SLEEP DISORDER

REACTIONS (1)
  - LOSS OF CONSCIOUSNESS [None]
